FAERS Safety Report 7158963-X (Version None)
Quarter: 2010Q4

REPORT INFORMATION
  Report Type: 
  Country: None (occurrence: None)
  Receive Date: 20101130
  Receipt Date: 20101116
  Transmission Date: 20110411
  Serious: Yes (Other)
  Sender: FDA-Public Use
  Company Number: 2010MA004604

PATIENT
  Age: 74 Year
  Sex: Male

DRUGS (4)
  1. AMLODIPINE BESYLATE [Suspect]
     Dosage: 10 MG;QD;PO
     Route: 048
  2. IMATINIB [Concomitant]
  3. PERINDOPRIL [Concomitant]
  4. ATORVASTATIN [Concomitant]

REACTIONS (8)
  - DRUG INTERACTION [None]
  - DRUG TOXICITY [None]
  - INCORRECT DOSE ADMINISTERED [None]
  - NAUSEA [None]
  - NEUROPATHY PERIPHERAL [None]
  - OEDEMA PERIPHERAL [None]
  - PALPITATIONS [None]
  - PERIORBITAL OEDEMA [None]
